FAERS Safety Report 7918988-0 (Version None)
Quarter: 2011Q4

REPORT INFORMATION
  Report Type: 
  Country: None (occurrence: None)
  Receive Date: 20111116
  Receipt Date: 20111107
  Transmission Date: 20120403
  Serious: Yes (Hospitalization, Disabling, Other)
  Sender: FDA-Public Use
  Company Number: CA-ASTRAZENECA-2011SE67177

PATIENT
  Sex: Male

DRUGS (3)
  1. CRESTOR [Suspect]
     Route: 048
  2. CRESTOR [Suspect]
     Route: 048
  3. CRESTOR [Suspect]
     Route: 048

REACTIONS (8)
  - ANGINA PECTORIS [None]
  - MUSCLE ATROPHY [None]
  - MYALGIA [None]
  - CHEST PAIN [None]
  - DYSSTASIA [None]
  - MUSCLE INJURY [None]
  - PAIN IN EXTREMITY [None]
  - MUSCULAR WEAKNESS [None]
